FAERS Safety Report 8860920 (Version 2)
Quarter: 2013Q3

REPORT INFORMATION
  Report Type: Spontaneous
  Country: US (occurrence: US)
  Receive Date: 20121025
  Receipt Date: 20130719
  Transmission Date: 20140515
  Serious: Yes (Other)
  Sender: FDA-Public Use
  Company Number: CHPA2012US022082

PATIENT
  Age: 77 Year
  Sex: Female

DRUGS (3)
  1. EXCEDRIN EXTRA STRENGTH [Suspect]
     Indication: BURSITIS
     Dosage: 1 DF, BID
     Route: 048
  2. EXCEDRIN EXTRA STRENGTH [Suspect]
     Indication: MIGRAINE
     Dosage: 1-3 DF, PRN
     Route: 048
  3. EXCEDRIN EXTRA STRENGTH [Suspect]
     Indication: BACK PAIN

REACTIONS (8)
  - Diabetes mellitus [Not Recovered/Not Resolved]
  - Thyroid disorder [Recovered/Resolved]
  - Pneumonia [Recovered/Resolved]
  - Intervertebral disc protrusion [Not Recovered/Not Resolved]
  - Back pain [Not Recovered/Not Resolved]
  - Off label use [Unknown]
  - Underdose [Unknown]
  - Incorrect dose administered [Unknown]
